FAERS Safety Report 17252211 (Version 1)
Quarter: 2020Q1

REPORT INFORMATION
  Report Type: Spontaneous
  Country: US (occurrence: US)
  Receive Date: 20200109
  Receipt Date: 20200109
  Transmission Date: 20200409
  Serious: No
  Sender: FDA-Public Use
  Company Number: US-PFIZER INC-2020006967

PATIENT
  Age: 50 Year
  Sex: Female
  Weight: 78.5 kg

DRUGS (11)
  1. TYLENOL WITH CODEINE [Interacting]
     Active Substance: ACETAMINOPHEN\CODEINE PHOSPHATE
     Indication: PAIN
     Dosage: UNK
     Dates: start: 201806, end: 201808
  2. LYRICA [Interacting]
     Active Substance: PREGABALIN
     Indication: FIBROMYALGIA
  3. CLONAZEPAM. [Interacting]
     Active Substance: CLONAZEPAM
     Indication: INSOMNIA
  4. PREDNISONE. [Interacting]
     Active Substance: PREDNISONE
     Dosage: 70 MG, UNK
     Dates: start: 201806
  5. EFFEXOR [Interacting]
     Active Substance: VENLAFAXINE HYDROCHLORIDE
     Indication: DEPRESSION
     Dosage: 75 MG, 2X/DAY
     Dates: start: 201806
  6. LYRICA [Suspect]
     Active Substance: PREGABALIN
     Indication: NEURALGIA
     Dosage: 75 MG, 3X/DAY
     Dates: start: 201804
  7. EFFEXOR [Interacting]
     Active Substance: VENLAFAXINE HYDROCHLORIDE
     Indication: ANXIETY
  8. EFFEXOR [Interacting]
     Active Substance: VENLAFAXINE HYDROCHLORIDE
     Indication: INJURY
  9. MOTRIN [Interacting]
     Active Substance: IBUPROFEN
     Indication: PAIN
     Dosage: 600 MG, UNK
     Dates: start: 201802, end: 201808
  10. PREDNISONE. [Interacting]
     Active Substance: PREDNISONE
     Indication: INFLAMMATION
     Dosage: 5 MG, UNK
     Dates: start: 201802, end: 201804
  11. CLONAZEPAM. [Interacting]
     Active Substance: CLONAZEPAM
     Indication: ANXIETY
     Dosage: UNK
     Dates: start: 201801, end: 201808

REACTIONS (1)
  - Drug interaction [Unknown]
